FAERS Safety Report 4746868-0 (Version None)
Quarter: 2005Q3

REPORT INFORMATION
  Report Type: 
  Country: None (occurrence: None)
  Receive Date: 20050817
  Receipt Date: 20050609
  Transmission Date: 20060218
  Serious: Yes (Other)
  Sender: FDA-Public Use
  Company Number: PHBS2005BE08252

PATIENT
  Age: 47 Year
  Sex: Female

DRUGS (5)
  1. ZOMETA [Suspect]
     Indication: METASTASES TO BONE
     Dosage: 4 MG, QMO
     Route: 042
     Dates: start: 20040301, end: 20050501
  2. FLUOROURACIL + CYCLOPHOSPHAMIDE [Concomitant]
     Route: 065
     Dates: start: 20040301, end: 20040401
  3. EPIRUBICIN [Concomitant]
     Route: 065
     Dates: start: 20040301, end: 20040401
  4. TAXOTERE [Concomitant]
     Dosage: EVERY 3 TO 4 WEEKS
     Route: 065
     Dates: start: 20040401, end: 20041201
  5. MEDROL [Concomitant]
     Route: 065
     Dates: start: 20040401, end: 20041201

REACTIONS (2)
  - ASEPTIC NECROSIS BONE [None]
  - WOUND DEBRIDEMENT [None]
